FAERS Safety Report 11107998 (Version 3)
Quarter: 2015Q3

REPORT INFORMATION
  Report Type: Report from Study
  Country: US (occurrence: US)
  Receive Date: 20150512
  Receipt Date: 20150715
  Transmission Date: 20151125
  Serious: Yes (Hospitalization)
  Sender: FDA-Public Use
  Company Number: US-ACTELION-A-NJ2015-117575

PATIENT
  Age: 54 Year
  Sex: Female
  Weight: 59.4 kg

DRUGS (4)
  1. TYVASO [Suspect]
     Active Substance: TREPROSTINIL
     Indication: PULMONARY HYPERTENSION
     Dosage: 18-90 MCG, (3-15 BREATHS) 4 X /DAY
     Route: 055
     Dates: start: 20120514
  2. REVATIO [Concomitant]
     Active Substance: SILDENAFIL CITRATE
  3. WARFARIN [Concomitant]
     Active Substance: WARFARIN
  4. MACITENTAN [Suspect]
     Active Substance: MACITENTAN
     Indication: PULMONARY ARTERIAL HYPERTENSION
     Dosage: 10 MG, QD
     Route: 048
     Dates: start: 20141113, end: 20150409

REACTIONS (6)
  - Sepsis [Unknown]
  - Fluid retention [Unknown]
  - Pyrexia [Unknown]
  - Dyspnoea [Unknown]
  - Oedema [Unknown]
  - Gastroenteritis viral [Unknown]

NARRATIVE: CASE EVENT DATE: 201502
